FAERS Safety Report 19772600 (Version 2)
Quarter: 2021Q3

REPORT INFORMATION
  Report Type: Spontaneous
  Country: DE (occurrence: DE)
  Receive Date: 20210901
  Receipt Date: 20210908
  Transmission Date: 20211014
  Serious: Yes (Other)
  Sender: FDA-Public Use
  Company Number: DE-MYLANLABS-2021M1053006

PATIENT
  Age: 70 Year
  Sex: Female

DRUGS (1)
  1. ALENDRONATE [Suspect]
     Active Substance: ALENDRONATE SODIUM
     Indication: OSTEITIS DEFORMANS
     Dosage: 70 MILLIGRAM, QW
     Route: 048
     Dates: start: 2014

REACTIONS (5)
  - Product use in unapproved indication [Unknown]
  - Loose tooth [Unknown]
  - Tooth loss [Recovered/Resolved]
  - Osteonecrosis of jaw [Recovered/Resolved]
  - Osteitis deformans [Unknown]

NARRATIVE: CASE EVENT DATE: 2014
